FAERS Safety Report 9131143 (Version 1)
Quarter: 2013Q1

REPORT INFORMATION
  Report Type: Spontaneous
  Country: US (occurrence: US)
  Receive Date: 20130301
  Receipt Date: 20130301
  Transmission Date: 20140127
  Serious: No
  Sender: FDA-Public Use
  Company Number: US-B.I. PHARMACEUTICALS,INC./RIDGEFIELD-2013-BI-05029BP

PATIENT
  Sex: Female
  Weight: 47 kg

DRUGS (8)
  1. PRADAXA [Suspect]
     Indication: ATRIAL FIBRILLATION
     Dosage: 300 MG
     Route: 048
     Dates: start: 2010
  2. FUROSEMIDE [Concomitant]
     Dosage: 20 MG
     Route: 048
  3. BISOPROLOL [Concomitant]
     Dosage: 10 MG
     Route: 048
  4. MULTIVITAMIN [Concomitant]
     Route: 048
  5. FISH OIL [Concomitant]
     Route: 048
  6. CALCIUM [Concomitant]
     Route: 048
  7. DIGOXIN [Concomitant]
     Dosage: 0.125 MG
     Route: 048
  8. VITAMIN D [Concomitant]
     Route: 048

REACTIONS (2)
  - Dyspepsia [Recovered/Resolved]
  - Photopsia [Recovered/Resolved]
